FAERS Safety Report 14341304 (Version 1)
Quarter: 2018Q1

REPORT INFORMATION
  Report Type: Spontaneous
  Country: JP (occurrence: JP)
  Receive Date: 20180102
  Receipt Date: 20180102
  Transmission Date: 20180509
  Serious: Yes (Other)
  Sender: FDA-Public Use
  Company Number: JP-ROCHE-2047377

PATIENT
  Age: 61 Year
  Sex: Female

DRUGS (4)
  1. 5-FU [Concomitant]
     Active Substance: FLUOROURACIL
     Indication: COLON CANCER
     Dosage: DOSAGE IS UNCERTAIN.
     Route: 040
  2. AVASTIN [Suspect]
     Active Substance: BEVACIZUMAB
     Indication: COLON CANCER
     Dosage: TREATMENT LINE: 1ST LINE?TREATMENT CYCLE OF THIS MEDICINE NUMBER: 3 OR MORE
     Route: 041
  3. OXALIPLATIN. [Concomitant]
     Active Substance: OXALIPLATIN
     Indication: COLON CANCER
     Route: 041
  4. 5-FU [Concomitant]
     Active Substance: FLUOROURACIL
     Indication: COLON CANCER
     Route: 041

REACTIONS (3)
  - Limb fracture [Not Recovered/Not Resolved]
  - Fall [Unknown]
  - Radius fracture [Not Recovered/Not Resolved]

NARRATIVE: CASE EVENT DATE: 20171215
